FAERS Safety Report 17468087 (Version 1)
Quarter: 2020Q1

REPORT INFORMATION
  Report Type: Spontaneous
  Country: PT (occurrence: PT)
  Receive Date: 20200227
  Receipt Date: 20200227
  Transmission Date: 20200409
  Serious: Yes (Hospitalization, Other)
  Sender: FDA-Public Use
  Company Number: PT-MYLANLABS-2020M1018875

PATIENT
  Age: 67 Year
  Sex: Female

DRUGS (5)
  1. ALOPURINOL [Concomitant]
     Active Substance: ALLOPURINOL
     Indication: GOUT
     Dosage: 150 MILLIGRAM, QD
     Route: 065
  2. ATENOLOL + CLORTALIDONA [Concomitant]
     Dosage: 1 DOSAGE FORM
     Route: 065
  3. SIMVASTATIN. [Suspect]
     Active Substance: SIMVASTATIN
     Indication: HYPERCHOLESTEROLAEMIA
     Dosage: 20 MILLIGRAM, QD
     Route: 065
  4. ATENOLOL + CLORTALIDONA [Concomitant]
     Dosage: 100 MILLIGRAM, QD
  5. ATENOLOL + CLORTALIDONA [Concomitant]
     Indication: ESSENTIAL HYPERTENSION
     Dosage: 25 MILLIGRAM, QD

REACTIONS (2)
  - Erythema [Unknown]
  - Immune-mediated myositis [Recovering/Resolving]
